FAERS Safety Report 7898301-8 (Version None)
Quarter: 2011Q4

REPORT INFORMATION
  Report Type: 
  Country: None (occurrence: None)
  Receive Date: 20111107
  Receipt Date: 20111026
  Transmission Date: 20120403
  Serious: Yes (Hospitalization)
  Sender: FDA-Public Use
  Company Number: JP-ASTRAZENECA-2011SE62813

PATIENT
  Age: 25390 Day
  Sex: Male

DRUGS (19)
  1. CEFPODOXIME PROXETIL [Concomitant]
     Route: 048
     Dates: start: 20110518
  2. HEPARIN SODIUM [Concomitant]
     Route: 042
     Dates: start: 20110416, end: 20110416
  3. HEPARIN SODIUM [Concomitant]
     Route: 042
     Dates: start: 20110415, end: 20110415
  4. HEPARIN SODIUM [Concomitant]
     Route: 042
     Dates: start: 20110417, end: 20110417
  5. HEPARIN SODIUM [Concomitant]
     Route: 042
     Dates: start: 20110518, end: 20110518
  6. HEPARIN SODIUM [Concomitant]
     Route: 042
     Dates: start: 20111021, end: 20111021
  7. LIPITOR [Concomitant]
     Indication: DYSLIPIDAEMIA
     Route: 048
     Dates: start: 20110423
  8. PLAVIX [Suspect]
     Indication: ACUTE CORONARY SYNDROME
     Dosage: TWICE DAILY
     Route: 048
     Dates: start: 20110415
  9. NICORANDIS [Concomitant]
     Indication: ACUTE CORONARY SYNDROME
     Route: 048
     Dates: start: 20110416
  10. PLACEBO [Suspect]
     Indication: ACUTE CORONARY SYNDROME
     Dosage: DAILY
     Route: 048
     Dates: start: 20110415
  11. ENALAPRIL MALEATE [Concomitant]
     Indication: HYPERTENSION
     Route: 048
     Dates: start: 20110423
  12. ALLOPURINOL [Concomitant]
     Indication: HYPERURICAEMIA
     Route: 048
     Dates: start: 20110615
  13. ASPIRIN [Suspect]
     Indication: ACUTE CORONARY SYNDROME
     Route: 048
     Dates: start: 20110415
  14. CEFPODOXIME PROXETIL [Concomitant]
     Route: 048
     Dates: start: 20110416, end: 20110418
  15. CEFPODOXIME PROXETIL [Concomitant]
     Route: 048
     Dates: start: 20111019, end: 20111022
  16. HEPARIN SODIUM [Concomitant]
     Route: 042
     Dates: start: 20111019, end: 20111019
  17. CEFPODOXIME PROXETIL [Concomitant]
     Indication: POST PROCEDURAL INFECTION
     Route: 048
     Dates: start: 20110415, end: 20110415
  18. HEPARIN SODIUM [Concomitant]
     Route: 042
     Dates: start: 20111020, end: 20111020
  19. NICORANDIS [Concomitant]
     Indication: ACUTE MYOCARDIAL INFARCTION
     Route: 048
     Dates: start: 20110416

REACTIONS (1)
  - THROMBOSIS IN DEVICE [None]
